FAERS Safety Report 11545463 (Version 6)
Quarter: 2024Q3

REPORT INFORMATION
  Report Type: Spontaneous
  Country: JP (occurrence: JP)
  Receive Date: 20150924
  Receipt Date: 20240709
  Transmission Date: 20241017
  Serious: Yes (Hospitalization, Other)
  Sender: AMGEN
  Company Number: JP-DSJP-DSJ-2015-129283

PATIENT
  Age: 62 Year
  Sex: Female
  Weight: 40 kg

DRUGS (14)
  1. DENOSUMAB [Suspect]
     Active Substance: DENOSUMAB
     Indication: Metastases to bone
     Dosage: 120 MG, Q4WK
     Route: 058
     Dates: start: 20130830, end: 201412
  2. MIGLITOL [Concomitant]
     Active Substance: MIGLITOL
     Indication: Diabetes mellitus
     Dosage: 50 MG, TID
     Route: 048
     Dates: start: 201308, end: 20140724
  3. LINAGLIPTIN [Concomitant]
     Active Substance: LINAGLIPTIN
     Indication: Diabetes mellitus
     Dosage: 5 MG, QD
     Route: 048
     Dates: start: 201308, end: 20140724
  4. NOVORAPID [Concomitant]
     Active Substance: INSULIN ASPART
     Indication: Diabetes mellitus
     Dosage: UNK
     Route: 050
     Dates: start: 20140724, end: 20150611
  5. ARIMIDEX [Concomitant]
     Active Substance: ANASTROZOLE
     Indication: Breast cancer
     Dosage: 1 MG, QD
     Route: 048
     Dates: start: 20130824, end: 20131214
  6. FENTANYL [Concomitant]
     Active Substance: FENTANYL\FENTANYL CITRATE
     Indication: Breast cancer
     Dosage: 0.3 MILLIGRAM
     Route: 050
     Dates: start: 20130910, end: 20130910
  7. FENTANYL [Concomitant]
     Active Substance: FENTANYL\FENTANYL CITRATE
     Indication: Intramedullary rod insertion
     Dosage: UNK
     Route: 065
  8. CALCIUM CARBONATE\CHOLECALCIFEROL\MAGNESIUM CARBONATE [Concomitant]
     Active Substance: CALCIUM CARBONATE\CHOLECALCIFEROL\MAGNESIUM CARBONATE
     Indication: Metastases to bone
     Dosage: 2 DF, QD
     Route: 048
     Dates: start: 20130830, end: 20141218
  9. DIPRIVAN [Concomitant]
     Active Substance: ISOPROPYL ALCOHOL\PROPOFOL
     Indication: Breast cancer
     Dosage: 100 ML, UNK
     Route: 050
     Dates: start: 20130910, end: 20130910
  10. DIPRIVAN [Concomitant]
     Active Substance: ISOPROPYL ALCOHOL\PROPOFOL
     Indication: Intramedullary rod insertion
     Dosage: UNK
     Route: 065
  11. DROPERIDOL [Concomitant]
     Active Substance: DROPERIDOL
     Indication: Breast cancer
     Dosage: 2.5 MILLIGRAM
     Route: 050
     Dates: start: 20130910, end: 20130910
  12. DROPERIDOL [Concomitant]
     Active Substance: DROPERIDOL
     Indication: Intramedullary rod insertion
     Dosage: UNK
     Route: 065
  13. ULTIVA [Concomitant]
     Active Substance: REMIFENTANIL HYDROCHLORIDE
     Indication: Breast cancer
     Dosage: 2 MG, UNK
     Route: 050
     Dates: start: 20130910, end: 20130910
  14. ULTIVA [Concomitant]
     Active Substance: REMIFENTANIL HYDROCHLORIDE
     Indication: Intramedullary rod insertion
     Dosage: UNK
     Route: 065

REACTIONS (1)
  - Osteonecrosis of jaw [Not Recovered/Not Resolved]

NARRATIVE: CASE EVENT DATE: 20141222
